FAERS Safety Report 16077869 (Version 8)
Quarter: 2020Q1

REPORT INFORMATION
  Report Type: Spontaneous
  Country: TW (occurrence: TW)
  Receive Date: 20190315
  Receipt Date: 20200317
  Transmission Date: 20200409
  Serious: Yes (Life-Threatening, Hospitalization, Other)
  Sender: FDA-Public Use
  Company Number: TW-SA-2019SA070436

PATIENT
  Age: 8 Year
  Sex: Male

DRUGS (8)
  1. MYOZYME [Suspect]
     Active Substance: ALGLUCOSIDASE ALFA
     Dosage: 400 MG, QW
     Route: 041
  2. MYOZYME [Suspect]
     Active Substance: ALGLUCOSIDASE ALFA
     Dosage: 500 MG, QW
     Route: 041
  3. MYOZYME [Suspect]
     Active Substance: ALGLUCOSIDASE ALFA
     Dosage: 550 MG, QW
     Route: 041
     Dates: start: 201702, end: 201808
  4. MYOZYME [Suspect]
     Active Substance: ALGLUCOSIDASE ALFA
     Dosage: 600 MG, QW
     Route: 041
     Dates: start: 201808
  5. MYOZYME [Suspect]
     Active Substance: ALGLUCOSIDASE ALFA
     Indication: GLYCOGEN STORAGE DISEASE TYPE II
     Dosage: UNK
     Route: 041
     Dates: start: 201108
  6. KCL [Concomitant]
     Active Substance: POTASSIUM CHLORIDE
     Dosage: 0.149 %, UNK
     Route: 065
  7. DEXTROSE. [Concomitant]
     Active Substance: DEXTROSE
     Dosage: 10 %, UNK
     Route: 065
  8. MANNITOL. [Concomitant]
     Active Substance: MANNITOL
     Dosage: UNK, UNK
     Route: 065

REACTIONS (14)
  - Inappropriate schedule of product administration [Unknown]
  - Asthenia [Unknown]
  - Hypoxia [Recovered/Resolved]
  - Ascites [Recovered/Resolved]
  - Respiratory failure [Recovered/Resolved]
  - Abdominal distension [Recovered/Resolved]
  - Cerebral haemorrhage [Recovered/Resolved]
  - Constipation [Recovered/Resolved]
  - Gaze palsy [Unknown]
  - Loss of consciousness [Unknown]
  - Malnutrition [Unknown]
  - Respiratory disorder [Recovered/Resolved]
  - Loss of consciousness [Recovered/Resolved]
  - Brain injury [Recovered/Resolved]

NARRATIVE: CASE EVENT DATE: 20190310
